FAERS Safety Report 6228164-8 (Version None)
Quarter: 2009Q2

REPORT INFORMATION
  Report Type: 
  Country: None (occurrence: None)
  Receive Date: 20090612
  Receipt Date: 20090608
  Transmission Date: 20091009
  Serious: Yes (Hospitalization)
  Sender: FDA-Public Use
  Company Number: SG-BRISTOL-MYERS SQUIBB COMPANY-14653471

PATIENT
  Age: 75 Year
  Sex: Female

DRUGS (2)
  1. AMOXICILLIN [Suspect]
  2. ALLOPURINOL [Suspect]
     Indication: GOUT

REACTIONS (4)
  - SKIN BACTERIAL INFECTION [None]
  - STAPHYLOCOCCAL INFECTION [None]
  - STEVENS-JOHNSON SYNDROME [None]
  - URINARY TRACT INFECTION BACTERIAL [None]
